FAERS Safety Report 8159060-7 (Version None)
Quarter: 2012Q1

REPORT INFORMATION
  Report Type: 
  Country: None (occurrence: None)
  Receive Date: 20120217
  Receipt Date: 20120126
  Transmission Date: 20120608
  Serious: Yes (Other)
  Sender: FDA-Public Use
  Company Number: ADR-2011-11695

PATIENT
  Sex: Female

DRUGS (2)
  1. BACLOFEN [Suspect]
     Indication: BACK PAIN
  2. BACLOFEN [Suspect]
     Indication: PAIN

REACTIONS (9)
  - MONOPLEGIA [None]
  - MASS [None]
  - PAIN IN EXTREMITY [None]
  - DEVICE DISLOCATION [None]
  - FALL [None]
  - ROAD TRAFFIC ACCIDENT [None]
  - HYPOAESTHESIA [None]
  - PARALYSIS [None]
  - MUSCLE SPASMS [None]
